FAERS Safety Report 23689512 (Version 2)
Quarter: 2024Q2

REPORT INFORMATION
  Report Type: Report from Study
  Country: US (occurrence: US)
  Receive Date: 20240331
  Receipt Date: 20240605
  Transmission Date: 20240716
  Serious: Yes (Other)
  Sender: FDA-Public Use
  Company Number: US-002147023-NVSC2024US004304

PATIENT
  Sex: Female

DRUGS (2)
  1. KESIMPTA [Suspect]
     Active Substance: OFATUMUMAB
     Indication: Multiple sclerosis
     Dosage: 20 MG, QMO
     Route: 058
     Dates: start: 20231004
  2. KESIMPTA [Suspect]
     Active Substance: OFATUMUMAB
     Indication: Relapsing multiple sclerosis

REACTIONS (12)
  - Multiple sclerosis relapse [Unknown]
  - Dizziness [Unknown]
  - Postural orthostatic tachycardia syndrome [Not Recovered/Not Resolved]
  - Feeling abnormal [Unknown]
  - Plantar erythema [Unknown]
  - Heart rate increased [Unknown]
  - Palpitations [Unknown]
  - Headache [Unknown]
  - Tooth abscess [Not Recovered/Not Resolved]
  - Ill-defined disorder [Unknown]
  - Palmar erythema [Unknown]
  - Cyanosis [Unknown]
